FAERS Safety Report 25742478 (Version 1)
Quarter: 2025Q3

REPORT INFORMATION
  Report Type: Spontaneous
  Country: CA (occurrence: CA)
  Receive Date: 20250829
  Receipt Date: 20250829
  Transmission Date: 20251021
  Serious: Yes (Life-Threatening, Hospitalization, Disabling, Other)
  Sender: MERCK SHARP & DOHME LLC
  Company Number: CA-009507513-2324082

PATIENT
  Age: 44 Year
  Sex: Female
  Weight: 97 kg

DRUGS (23)
  1. APREPITANT [Suspect]
     Active Substance: APREPITANT
     Indication: Product used for unknown indication
     Route: 042
  2. APREPITANT [Suspect]
     Active Substance: APREPITANT
     Indication: Product used for unknown indication
     Route: 065
  3. ACETAMINOPHEN AND CODEINE [Concomitant]
     Active Substance: ACETAMINOPHEN\CODEINE PHOSPHATE
     Indication: Product used for unknown indication
     Route: 065
  4. CALCIUM GLUCONATE [Concomitant]
     Active Substance: CALCIUM GLUCONATE
     Indication: Product used for unknown indication
     Route: 065
  5. DESOGESTREL\ETHINYL ESTRADIOL [Concomitant]
     Active Substance: DESOGESTREL\ETHINYL ESTRADIOL
     Indication: Rheumatoid arthritis
     Route: 065
  6. DIPHENHYDRAMINE HYDROCHLORIDE [Concomitant]
     Active Substance: DIPHENHYDRAMINE HYDROCHLORIDE
     Indication: Rheumatoid arthritis
     Route: 065
  7. ERGOCALCIFEROL [Concomitant]
     Active Substance: ERGOCALCIFEROL
     Indication: Product used for unknown indication
     Route: 065
  8. GLUCOSAMINE [Concomitant]
     Active Substance: GLUCOSAMINE
     Indication: Product used for unknown indication
     Route: 065
  9. IBUPROFEN [Concomitant]
     Active Substance: IBUPROFEN
     Indication: Product used for unknown indication
     Route: 065
  10. LANSOPRAZOLE [Concomitant]
     Active Substance: LANSOPRAZOLE
     Indication: Product used for unknown indication
     Route: 065
  11. LORAZEPAM [Concomitant]
     Active Substance: LORAZEPAM
     Indication: Product used for unknown indication
     Route: 065
  12. MARVELON [Concomitant]
     Active Substance: DESOGESTREL\ETHINYL ESTRADIOL
     Indication: Product used for unknown indication
     Route: 065
  13. PANTOPRAZOLE [Concomitant]
     Active Substance: PANTOPRAZOLE
     Indication: Product used for unknown indication
     Route: 065
  14. PANTOPRAZOLE SODIUM [Concomitant]
     Active Substance: PANTOPRAZOLE SODIUM
     Indication: Product used for unknown indication
     Route: 048
  15. PANTOPRAZOLE SODIUM [Concomitant]
     Active Substance: PANTOPRAZOLE SODIUM
     Indication: Product used for unknown indication
     Route: 065
  16. PANTOPRAZOLE SODIUM [Concomitant]
     Active Substance: PANTOPRAZOLE SODIUM
     Indication: Product used for unknown indication
     Route: 065
  17. QUETIAPINE FUMARATE [Concomitant]
     Active Substance: QUETIAPINE FUMARATE
     Indication: Product used for unknown indication
     Route: 065
  18. CETIRIZINE HYDROCHLORIDE [Concomitant]
     Active Substance: CETIRIZINE HYDROCHLORIDE
     Indication: Product used for unknown indication
     Route: 065
  19. SULFASALAZINE [Concomitant]
     Active Substance: SULFASALAZINE
     Indication: Product used for unknown indication
     Route: 065
  20. FISH OIL [Concomitant]
     Active Substance: FISH OIL
     Indication: Product used for unknown indication
     Route: 065
  21. TYLENOL [Concomitant]
     Active Substance: ACETAMINOPHEN
     Indication: Product used for unknown indication
     Route: 065
  22. VITAMIN C [Concomitant]
     Active Substance: ASCORBIC ACID
     Indication: Product used for unknown indication
     Route: 065
  23. ZOPICLONE [Concomitant]
     Active Substance: ZOPICLONE
     Indication: Product used for unknown indication
     Route: 065

REACTIONS (36)
  - Pruritus [Not Recovered/Not Resolved]
  - Drug ineffective [Not Recovered/Not Resolved]
  - Headache [Not Recovered/Not Resolved]
  - Helicobacter infection [Not Recovered/Not Resolved]
  - Hepatic enzyme increased [Not Recovered/Not Resolved]
  - Hypersensitivity [Not Recovered/Not Resolved]
  - Hypertension [Not Recovered/Not Resolved]
  - Ill-defined disorder [Not Recovered/Not Resolved]
  - Impaired healing [Not Recovered/Not Resolved]
  - Infection [Not Recovered/Not Resolved]
  - Inflammation [Not Recovered/Not Resolved]
  - Infusion related reaction [Not Recovered/Not Resolved]
  - Injury [Not Recovered/Not Resolved]
  - Insomnia [Not Recovered/Not Resolved]
  - Intentional product use issue [Unknown]
  - Irritable bowel syndrome [Not Recovered/Not Resolved]
  - Joint range of motion decreased [Not Recovered/Not Resolved]
  - Joint swelling [Not Recovered/Not Resolved]
  - Peripheral swelling [Not Recovered/Not Resolved]
  - Product use in unapproved indication [Unknown]
  - Product use issue [Unknown]
  - Lip dry [Not Recovered/Not Resolved]
  - Liver disorder [Not Recovered/Not Resolved]
  - Lower respiratory tract infection [Not Recovered/Not Resolved]
  - Lung disorder [Not Recovered/Not Resolved]
  - Medication error [Unknown]
  - Muscle injury [Not Recovered/Not Resolved]
  - Muscle spasms [Not Recovered/Not Resolved]
  - Musculoskeletal pain [Not Recovered/Not Resolved]
  - Musculoskeletal stiffness [Not Recovered/Not Resolved]
  - Nasopharyngitis [Not Recovered/Not Resolved]
  - Night sweats [Not Recovered/Not Resolved]
  - Off label use [Unknown]
  - Pain [Not Recovered/Not Resolved]
  - Pemphigus [Not Recovered/Not Resolved]
  - Pericarditis [Not Recovered/Not Resolved]
